FAERS Safety Report 6091248-1 (Version None)
Quarter: 2009Q1

REPORT INFORMATION
  Report Type: 
  Country: None (occurrence: None)
  Receive Date: 20090225
  Receipt Date: 20080613
  Transmission Date: 20090719
  Serious: Yes (Death)
  Sender: FDA-Public Use
  Company Number: CN-BAYER-200913713GPV

PATIENT
  Age: 73 Year
  Sex: Male

DRUGS (1)
  1. NEXAVAR [Suspect]
     Indication: PROSTATE CANCER
     Dosage: TOTAL DAILY DOSE: 800 MG
     Route: 048
     Dates: start: 20080401

REACTIONS (7)
  - BLOOD PRESSURE INCREASED [None]
  - DEATH [None]
  - ERYTHEMA [None]
  - RASH [None]
  - SCLERODERMA [None]
  - SKIN EXFOLIATION [None]
  - SWELLING [None]
